FAERS Safety Report 5079642-9 (Version None)
Quarter: 2006Q3

REPORT INFORMATION
  Report Type: 
  Country: None (occurrence: None)
  Receive Date: 20060808
  Receipt Date: 20060731
  Transmission Date: 20061208
  Serious: Yes (Other)
  Sender: FDA-Public Use
  Company Number: 2006094126

PATIENT
  Age: 5 Month
  Sex: Male
  Weight: 6.804 kg

DRUGS (1)
  1. INFANT'S PEDIACARE DECONGESTANT AND COUGH DROPS (PSEUDOEPHEDRINE, DEXT [Suspect]
     Dosage: 2-3 DROPPERFULS, ORAL
     Route: 048
     Dates: start: 20060731, end: 20060731

REACTIONS (3)
  - DIARRHOEA [None]
  - ERYTHEMA OF EYELID [None]
  - UNEVALUABLE EVENT [None]
